FAERS Safety Report 10171728 (Version 1)
Quarter: 2014Q2

REPORT INFORMATION
  Report Type: Spontaneous
  Country: US (occurrence: None)
  Receive Date: 20140512
  Receipt Date: 20140512
  Transmission Date: 20141212
  Serious: Yes (Hospitalization)
  Sender: FDA-Public Use
  Company Number: UTC-048350

PATIENT
  Age: 31 Year
  Sex: Female
  Weight: 101.6 kg

DRUGS (4)
  1. TYVASO (0.6 MILLIGRAM/MILLILITERS, AEROSOL FOR INHALATION) (TREPROSTINIL SODIUM) [Suspect]
     Indication: COR PULMONALE CHRONIC
     Route: 055
     Dates: start: 20130822
  2. REMODULIN (1 MILLIGRAM/MILLILITERS, INJECTION FOR INFUSION) (TREPROSTINIL SODIUM) [Suspect]
     Indication: COR PULMONALE CHRONIC
     Dosage: 15.84 UG/KG (0.011 UG/KG,L IN 1 MIN),INTRAVENOUS DRIP?21-272
     Route: 041
     Dates: start: 20140415
  3. COUMADIN (WARFARIN SODIUM) [Concomitant]
  4. REVATIO (SILDENAFIL CITRATE) [Concomitant]

REACTIONS (1)
  - Pulmonary oedema [None]
